FAERS Safety Report 8909639 (Version 1)
Quarter: 2012Q4

REPORT INFORMATION
  Report Type: Report from Study
  Country: DE (occurrence: DE)
  Receive Date: 20121115
  Receipt Date: 20121115
  Transmission Date: 20130627
  Serious: Yes (Hospitalization)
  Sender: FDA-Public Use
  Company Number: DE-ROCHE-1146423

PATIENT
  Sex: Female
  Weight: 67 kg

DRUGS (7)
  1. BEVACIZUMAB [Suspect]
     Indication: COLON CANCER METASTATIC
     Route: 042
  2. BEVACIZUMAB [Suspect]
     Indication: METASTASES TO LARGE INTESTINE
  3. FLUOROURACIL [Suspect]
     Indication: COLON CANCER METASTATIC
     Route: 042
  4. IRINOTECAN [Suspect]
     Indication: COLON CANCER METASTATIC
     Route: 042
  5. DEXAMETHASON [Concomitant]
     Route: 042
  6. ONDANSETRON [Concomitant]
     Route: 042
  7. FOLINIC ACID [Concomitant]
     Route: 042

REACTIONS (4)
  - Colitis [Recovered/Resolved]
  - Metastases to peritoneum [Unknown]
  - Metastases to lymph nodes [Unknown]
  - Oedema peripheral [Unknown]
